FAERS Safety Report 7950183-1 (Version None)
Quarter: 2011Q4

REPORT INFORMATION
  Report Type: 
  Country: None (occurrence: None)
  Receive Date: 20111130
  Receipt Date: 20100204
  Transmission Date: 20120403
  Serious: Yes (Other)
  Sender: FDA-Public Use
  Company Number: PHHY2010TW49665

PATIENT
  Sex: Male

DRUGS (2)
  1. GLEEVEC [Suspect]
     Dosage: 400 MG, BID
  2. GLEEVEC [Suspect]
     Indication: CHRONIC MYELOID LEUKAEMIA
     Dosage: 300 MG, UNK
     Route: 048
     Dates: start: 20100128

REACTIONS (7)
  - DEMENTIA [None]
  - DRY SKIN [None]
  - HAEMOGLOBIN DECREASED [None]
  - SKIN SWELLING [None]
  - DEPRESSED MOOD [None]
  - AMNESIA [None]
  - EYE DISCHARGE [None]
